FAERS Safety Report 18445817 (Version 1)
Quarter: 2020Q4

REPORT INFORMATION
  Report Type: Not Available
  Country: None (occurrence: None)
  Receive Date: 20201030
  Receipt Date: 20201030
  Transmission Date: 20210114
  Serious: No
  Sender: FDA-Public Use
  Company Number: US-AKORN-154199

PATIENT
  Sex: Male

DRUGS (1)
  1. COSOPT PF [Suspect]
     Active Substance: DORZOLAMIDE HYDROCHLORIDE\TIMOLOL MALEATE

REACTIONS (3)
  - Eye irritation [Recovered/Resolved]
  - Swelling of eyelid [None]
  - Eye pruritus [Recovered/Resolved]
